FAERS Safety Report 13191301 (Version 1)
Quarter: 2017Q1

REPORT INFORMATION
  Report Type: Spontaneous
  Country: US (occurrence: US)
  Receive Date: 20170206
  Receipt Date: 20170206
  Transmission Date: 20170428
  Serious: Yes (Disabling)
  Sender: FDA-Public Use
  Company Number: None

PATIENT
  Age: 41 Year
  Sex: Male
  Weight: 142.2 kg

DRUGS (3)
  1. LISINOPRIL. [Concomitant]
     Active Substance: LISINOPRIL
  2. ALIGN PROBOTICS [Concomitant]
  3. CLINDAMYCIN 300MG [Suspect]
     Active Substance: CLINDAMYCIN PHOSPHATE
     Indication: FOLLICULITIS
     Dosage: ?          QUANTITY:1 TABLET(S);?
     Route: 048
     Dates: start: 20170109, end: 20170117

REACTIONS (5)
  - Diarrhoea [None]
  - Clostridium difficile infection [None]
  - Muscle spasms [None]
  - Abdominal pain upper [None]
  - Gastrointestinal disorder [None]

NARRATIVE: CASE EVENT DATE: 20170123
